FAERS Safety Report 5742281-8 (Version None)
Quarter: 2008Q2

REPORT INFORMATION
  Report Type: 
  Country: None (occurrence: None)
  Receive Date: 20080519
  Receipt Date: 20080512
  Transmission Date: 20081010
  Serious: Yes (Other)
  Sender: FDA-Public Use
  Company Number: PHHY2008BR07860

PATIENT
  Age: 76 Year
  Sex: Female
  Weight: 88 kg

DRUGS (4)
  1. VENALOT [Concomitant]
     Indication: LYMPHOEDEMA
     Dosage: 1 TABLET DAILY
     Route: 048
     Dates: start: 20060630
  2. BETASERC [Concomitant]
     Indication: TINNITUS
     Dosage: 1 TABLET DAILY
     Route: 048
     Dates: start: 20060509
  3. ARTRODAR [Concomitant]
     Route: 048
     Dates: start: 20070208
  4. DIOVAN HCT [Suspect]
     Indication: HYPERTENSION
     Dosage: 1 TABLET/DAY 80/12.5MG
     Route: 048
     Dates: start: 20040101

REACTIONS (7)
  - BONE PAIN [None]
  - DIZZINESS [None]
  - HYPERTENSION [None]
  - INFLUENZA [None]
  - OEDEMA PERIPHERAL [None]
  - PHARYNGOLARYNGEAL PAIN [None]
  - UMBILICAL HERNIA [None]
